FAERS Safety Report 8391046-X (Version None)
Quarter: 2012Q2

REPORT INFORMATION
  Report Type: 
  Country: None (occurrence: None)
  Receive Date: 20120529
  Receipt Date: 20120521
  Transmission Date: 20120825
  Serious: No
  Sender: FDA-Public Use
  Company Number: JP-ABBOTT-12P-087-0913046-00

PATIENT
  Sex: Female
  Weight: 48 kg

DRUGS (47)
  1. SOLITA-T NO.3 [Concomitant]
     Indication: POSTOPERATIVE CARE
     Dates: start: 20110428, end: 20110509
  2. CARBAZOCHROME SODIUM SULFONATE HYDRATE [Concomitant]
     Indication: POSTOPERATIVE CARE
     Dates: start: 20110428, end: 20110501
  3. VITAMIN B COMPLEX CAP [Concomitant]
     Indication: POSTOPERATIVE CARE
     Dates: start: 20110428, end: 20110515
  4. FERRIC OXIDE SACCHARATED [Concomitant]
     Indication: ANAEMIA PROPHYLAXIS
     Dates: start: 20110507, end: 20110519
  5. FERRIC OXIDE SACCHARATED [Concomitant]
  6. PREDNISOLONE [Concomitant]
     Indication: SYSTEMIC LUPUS ERYTHEMATOSUS
     Route: 048
     Dates: end: 20110906
  7. SCOPOLAMINE BUTYLBROMIDE [Concomitant]
     Indication: ABDOMINAL PAIN
     Dates: start: 20110509, end: 20110509
  8. MAGNESIUM CITRATE [Concomitant]
     Indication: PREOPERATIVE CARE
     Route: 048
     Dates: start: 20110427, end: 20110427
  9. FAMOTIDINE [Concomitant]
     Indication: ABDOMINAL PAIN UPPER
     Route: 048
     Dates: start: 20110509, end: 20110608
  10. FAMOTIDINE [Concomitant]
     Indication: PROPHYLAXIS
  11. FERROUS FUMARATE [Concomitant]
     Indication: ANAEMIA PROPHYLAXIS
     Dosage: DAILY
     Route: 048
     Dates: start: 20110518, end: 20110523
  12. ATENOLOL [Concomitant]
     Indication: SYSTEMIC LUPUS ERYTHEMATOSUS
     Route: 048
     Dates: end: 20110906
  13. TACROLIMUS [Concomitant]
     Indication: SYSTEMIC LUPUS ERYTHEMATOSUS
     Route: 048
     Dates: end: 20110906
  14. ANTIBIOTICS-RESISTANT LACTIC ACID BACTERIAE [Concomitant]
     Indication: DRUG THERAPY
     Route: 048
     Dates: start: 20110507, end: 20110508
  15. OXETHAZAINE [Concomitant]
     Indication: PROPHYLAXIS
  16. GLUCOSE [Concomitant]
     Indication: ANAEMIA
     Dates: start: 20110507, end: 20110519
  17. SALINE [Concomitant]
     Indication: POSTOPERATIVE CARE
     Dates: start: 20110508, end: 20110509
  18. METOCLOPRAMIDE [Concomitant]
     Indication: PROPHYLAXIS
  19. PENTASA [Suspect]
     Indication: CROHN'S DISEASE
     Route: 048
     Dates: start: 20110419, end: 20110803
  20. KETOPROFEN [Concomitant]
     Indication: POSTOPERATIVE CARE
     Route: 061
     Dates: start: 20110506, end: 20110508
  21. LOXOPROFEN SODIUM HYDRATE [Concomitant]
     Indication: POSTOPERATIVE CARE
     Dosage: TOTAL 660 MG
     Route: 048
     Dates: start: 20110430, end: 20110430
  22. HUMIRA [Suspect]
     Route: 058
     Dates: start: 20110626
  23. LOPERAMIDE HCL [Concomitant]
     Indication: DIARRHOEA
     Dosage: DAILY
     Route: 048
     Dates: start: 20110510, end: 20110608
  24. ETIZOLAM [Concomitant]
     Indication: INSOMNIA
     Route: 048
     Dates: start: 20110506, end: 20110506
  25. ETIZOLAM [Concomitant]
     Indication: PROPHYLAXIS
  26. BROTIZOLAM [Concomitant]
     Indication: PREOPERATIVE CARE
     Route: 048
     Dates: start: 20110427, end: 20110427
  27. SODIUM BICARBONATE/ANYHYDROUS MONOBASIC SODIUM PHOSPHATE [Concomitant]
     Indication: PREOPERATIVE CARE
     Route: 054
     Dates: start: 20110428, end: 20110428
  28. HUMIRA [Suspect]
     Route: 058
     Dates: start: 20110511, end: 20110511
  29. FERROUS FUMARATE [Concomitant]
  30. CEFMETAZOLE SODIUM [Concomitant]
     Indication: POSTOPERATIVE CARE
     Dates: start: 20110428, end: 20110501
  31. CANDESARTAN CILEXETIL [Concomitant]
     Indication: SYSTEMIC LUPUS ERYTHEMATOSUS
     Route: 048
     Dates: start: 20110725
  32. AZULENE [Concomitant]
     Indication: DERMATITIS
     Route: 061
     Dates: start: 20110330, end: 20110404
  33. MINOCYCLINE HYDROCHLORIDE [Concomitant]
     Indication: PRODUCT USED FOR UNKNOWN INDICATION
     Route: 048
     Dates: start: 20110330, end: 20110504
  34. SENNOSIDE [Concomitant]
     Indication: PREOPERATIVE CARE
     Route: 048
     Dates: start: 20110427, end: 20110427
  35. LACTOMIN [Concomitant]
     Indication: CROHN'S DISEASE
     Route: 048
     Dates: start: 20110419, end: 20110803
  36. SODIUM BICARBONATE/ANHYDROUS MONOBASIC SODIUM PHOSPHATE [Concomitant]
     Indication: CONSTIPATION
     Route: 061
     Dates: start: 20110405, end: 20110508
  37. OXETHAZAINE [Concomitant]
     Indication: ABDOMINAL PAIN UPPER
     Route: 048
     Dates: start: 20110509, end: 20110509
  38. TRANEXAMIC ACID [Concomitant]
     Indication: POSTOPERATIVE CARE
     Dates: start: 20110428, end: 20110501
  39. ASCORBIC ACID [Concomitant]
     Indication: POSTOPERATIVE CARE
     Dates: start: 20110507, end: 20110515
  40. DIPYRIDAMOLE [Concomitant]
     Indication: SYSTEMIC LUPUS ERYTHEMATOSUS
     Route: 048
     Dates: end: 20110906
  41. METOCLOPRAMIDE [Concomitant]
     Indication: NAUSEA
     Route: 048
     Dates: start: 20110507, end: 20110508
  42. DIAZEPAM [Concomitant]
     Indication: PREOPERATIVE CARE
     Route: 048
     Dates: start: 20110428, end: 20110428
  43. TRIBENOSIDE/LIDOCAINE [Concomitant]
     Indication: PRODUCT USED FOR UNKNOWN INDICATION
     Route: 061
     Dates: start: 20110330, end: 20110906
  44. HUMIRA [Suspect]
     Indication: CROHN'S DISEASE
     Route: 058
     Dates: start: 20110427, end: 20110427
  45. MALTOSE/LACTATED RINGER'S SOLUTION [Concomitant]
     Indication: POSTOPERATIVE CARE
     Dates: start: 20110428, end: 20110501
  46. FAMOTIDINE [Concomitant]
     Indication: POSTOPERATIVE CARE
     Dates: start: 20110507, end: 20110516
  47. ALFACALCIDOL [Concomitant]
     Indication: SYSTEMIC LUPUS ERYTHEMATOSUS
     Route: 048
     Dates: end: 20110906

REACTIONS (3)
  - RENAL IMPAIRMENT [None]
  - RASH [None]
  - ALOPECIA [None]
